FAERS Safety Report 5301872-9 (Version None)
Quarter: 2007Q2

REPORT INFORMATION
  Report Type: 
  Country: None (occurrence: None)
  Receive Date: 20070419
  Receipt Date: 20070409
  Transmission Date: 20071010
  Serious: Yes (Other)
  Sender: FDA-Public Use
  Company Number: TW-ROCHE-491933

PATIENT
  Age: 18 Year
  Sex: Male

DRUGS (2)
  1. TAMIFLU [Suspect]
     Indication: INFLUENZA
     Route: 048
     Dates: start: 20070315, end: 20070315
  2. AMANTADINE HCL [Suspect]
     Indication: INFLUENZA
     Dosage: START DATE:2007, STOP DATE:2007. THE PATIENT RECEIVED 6 DOSES.
     Route: 065

REACTIONS (1)
  - NERVOUS SYSTEM DISORDER [None]
